FAERS Safety Report 4805453-2 (Version None)
Quarter: 2005Q4

REPORT INFORMATION
  Report Type: 
  Country: None (occurrence: None)
  Receive Date: 20051018
  Receipt Date: 20050928
  Transmission Date: 20060501
  Serious: Yes (Death)
  Sender: FDA-Public Use
  Company Number: 218509

PATIENT
  Age: 57 Year
  Sex: Male
  Weight: 92 kg

DRUGS (6)
  1. AVASTIN (BEVACIZUMAB) PWDR + SOLVENT, INFUSION SOLN, 100MG [Suspect]
     Indication: COLORECTAL CANCER METASTATIC
     Dosage: 460 MG, Q2W, INTRAVENOUS
     Route: 042
     Dates: start: 20050504, end: 20050921
  2. OXALIPLATIN (OXALIPLATIN) [Suspect]
     Indication: COLORECTAL CANCER METASTATIC
     Dosage: 180 MG, Q2W, INTRAVENOUS
     Route: 042
     Dates: start: 20050504, end: 20050907
  3. FLUOROURACIL [Suspect]
     Indication: COLORECTAL CANCER METASTATIC
     Dosage: 4160 MG, Q2W, INTRAVENOUS
     Route: 042
     Dates: start: 20050404, end: 20050907
  4. ANTIHYPERTENSIVE MEDICATION NOS (ANTIHYPERTENSIVE NOS) [Concomitant]
  5. ASPIRIN [Concomitant]
  6. BIGUANIDES (BIGUANIDES NOS) [Concomitant]

REACTIONS (3)
  - CARDIO-RESPIRATORY ARREST [None]
  - MYOCARDIAL INFARCTION [None]
  - PULMONARY EMBOLISM [None]
